FAERS Safety Report 15738989 (Version 1)
Quarter: 2018Q4

REPORT INFORMATION
  Report Type: Spontaneous
  Country: US (occurrence: US)
  Receive Date: 20181217
  Receipt Date: 20181217
  Transmission Date: 20190205
  Serious: No
  Sender: FDA-Public Use
  Company Number: None

PATIENT
  Age: 63 Year
  Sex: Female

DRUGS (1)
  1. CARBON DIOXIDE. [Suspect]
     Active Substance: CARBON DIOXIDE

REACTIONS (3)
  - Carbon monoxide poisoning [None]
  - Device extension damage [None]
  - Medical device site odour [None]
